FAERS Safety Report 4691143-6 (Version None)
Quarter: 2005Q2

REPORT INFORMATION
  Report Type: 
  Country: None (occurrence: None)
  Receive Date: 20050610
  Receipt Date: 20050601
  Transmission Date: 20051028
  Serious: Yes (Death)
  Sender: FDA-Public Use
  Company Number: 2005-06-0086

PATIENT
  Age: 78 Year
  Sex: Male

DRUGS (11)
  1. ISOSORBIDE MONONITRATE [Suspect]
  2. TIOTROPIUM BROMIDE [Suspect]
     Indication: CHRONIC OBSTRUCTIVE PULMONARY DISEASE
     Dosage: INHALATION
     Route: 055
     Dates: start: 20040201
  3. CO-CODAMOL [Suspect]
  4. BISOPROLOL FUMARATE [Suspect]
  5. SIMVASTATIN [Suspect]
  6. FUROSEMIDE [Suspect]
  7. ACETYLSALICYLIC ACID SRT [Suspect]
  8. NICORANDIL [Suspect]
  9. REBEPRAZOLE [Suspect]
  10. SERETIDE (SALMETEROL XINAFOATE/FLUTICASONE PROPIONAT [Suspect]
  11. SALBUTAMOL (ALBUTEROL) [Concomitant]

REACTIONS (2)
  - LEFT VENTRICULAR FAILURE [None]
  - MYOCARDIAL ISCHAEMIA [None]
